FAERS Safety Report 9457194 (Version 2)
Quarter: 2013Q3

REPORT INFORMATION
  Report Type: Spontaneous
  Country: US (occurrence: US)
  Receive Date: 20130814
  Receipt Date: 20130907
  Transmission Date: 20140515
  Serious: No
  Sender: FDA-Public Use
  Company Number: US-B.I. PHARMACEUTICALS,INC./RIDGEFIELD-2013-BI-24127BP

PATIENT
  Age: 82 Year
  Sex: Female
  Weight: 70 kg

DRUGS (5)
  1. PRADAXA [Suspect]
     Indication: ATRIAL FIBRILLATION
     Dosage: 150 MG
     Route: 048
     Dates: start: 20130726
  2. PRADAXA [Suspect]
     Indication: CEREBROVASCULAR ACCIDENT PROPHYLAXIS
  3. AZITHROMYCIN [Concomitant]
     Indication: LATENT TUBERCULOSIS
     Dosage: 1000 MG
     Route: 048
  4. RIFAMPIN [Concomitant]
     Indication: LATENT TUBERCULOSIS
     Dosage: 600 MG
     Route: 048
  5. ASPIRIN [Concomitant]
     Indication: ATRIAL FIBRILLATION
     Dosage: 81 MG
     Route: 048

REACTIONS (1)
  - Headache [Not Recovered/Not Resolved]
